FAERS Safety Report 19198451 (Version 1)
Quarter: 2021Q2

REPORT INFORMATION
  Report Type: Other
  Country: KE (occurrence: KE)
  Receive Date: 20210430
  Receipt Date: 20210430
  Transmission Date: 20210717
  Serious: Yes (Other)
  Sender: FDA-Public Use
  Company Number: KE-MACLEODS PHARMACEUTICALS US LTD-MAC2021030967

PATIENT

DRUGS (3)
  1. DOLUTEGRAVIR TABLETS [Suspect]
     Active Substance: DOLUTEGRAVIR
     Indication: HIV INFECTION
     Dosage: 1 DOSAGE FORM, QD, TAB, 1 COURSE, EXPOSURE AT 1 TRIMESTER
     Route: 048
     Dates: start: 20200221
  2. ZIDOVUDINE TABLET [Suspect]
     Active Substance: ZIDOVUDINE
     Indication: HIV INFECTION
     Dosage: 2 DOSAGE FORM, QD
     Route: 048
     Dates: start: 20150119
  3. LAMIVUDINE TABLET [Suspect]
     Active Substance: LAMIVUDINE
     Indication: HIV INFECTION
     Dosage: 2 DOSAGE FORM, QD, TAB, 2 COURSE, EXPOSURE AT 1 TRIMESTER
     Route: 048
     Dates: start: 20150119

REACTIONS (2)
  - Abortion spontaneous [Unknown]
  - Maternal exposure during pregnancy [Unknown]

NARRATIVE: CASE EVENT DATE: 20201209
